FAERS Safety Report 5223650-1 (Version None)
Quarter: 2007Q1

REPORT INFORMATION
  Report Type: 
  Country: None (occurrence: None)
  Receive Date: 20070130
  Receipt Date: 20070117
  Transmission Date: 20070707
  Serious: Yes (Hospitalization, Disabling)
  Sender: FDA-Public Use
  Company Number: DE-SANOFI-SYNTHELABO-A04200700017

PATIENT
  Sex: Male
  Weight: 79 kg

DRUGS (3)
  1. FOLINIC ACID [Suspect]
     Indication: COLON CANCER
     Route: 041
     Dates: start: 20060101, end: 20060101
  2. FLUOROURACIL [Suspect]
     Indication: COLON CANCER
     Route: 041
     Dates: start: 20060101, end: 20060101
  3. ELOXATIN [Suspect]
     Indication: COLON CANCER
     Route: 041
     Dates: start: 20061025, end: 20061025

REACTIONS (3)
  - BACK PAIN [None]
  - NEUROPATHY [None]
  - RENAL FAILURE CHRONIC [None]
